FAERS Safety Report 22237647 (Version 1)
Quarter: 2023Q2

REPORT INFORMATION
  Report Type: Spontaneous
  Country: DE (occurrence: DE)
  Receive Date: 20230421
  Receipt Date: 20230421
  Transmission Date: 20230721
  Serious: Yes (Hospitalization, Other)
  Sender: FDA-Public Use
  Company Number: DE-TWI PHARMACEUTICAL, INC-2023SCTW000022

PATIENT

DRUGS (1)
  1. DIMETHYL FUMARATE [Suspect]
     Active Substance: DIMETHYL FUMARATE
     Indication: Relapsing-remitting multiple sclerosis
     Dosage: UNK UNK, BID
     Route: 065

REACTIONS (2)
  - Meningitis cryptococcal [Recovered/Resolved]
  - Lymphopenia [Recovered/Resolved]
